FAERS Safety Report 10195928 (Version 1)
Quarter: 2014Q2

REPORT INFORMATION
  Report Type: Spontaneous
  Country: US (occurrence: US)
  Receive Date: 20140527
  Receipt Date: 20140527
  Transmission Date: 20141212
  Serious: No
  Sender: FDA-Public Use
  Company Number: US-JNJFOC-20140508320

PATIENT
  Age: 54 Year
  Sex: Female
  Weight: 108.86 kg

DRUGS (9)
  1. FENTANYL TRANSDERMAL SYSTEM [Suspect]
     Indication: PRODUCT USED FOR UNKNOWN INDICATION
     Route: 062
     Dates: start: 201403
  2. BUPROPION [Concomitant]
     Route: 048
  3. ATORVASTATIN [Concomitant]
     Route: 048
     Dates: start: 2012
  4. MONTELUKAST SODIUM [Concomitant]
     Route: 048
  5. PANTOPRAZOLE SODIUM [Concomitant]
     Route: 048
  6. TOPIRAMATE [Concomitant]
     Route: 048
     Dates: start: 2010
  7. MELOXICAM [Concomitant]
     Route: 048
     Dates: start: 201401
  8. HYDROCODONE ACETAMINOPHEN [Concomitant]
     Indication: FALL
     Dosage: 5/325MG 1-2 EVERY 4-6 HOURS AS NEEDED
     Route: 048
     Dates: start: 201401
  9. LORAZEPAM [Concomitant]
     Route: 048

REACTIONS (2)
  - Wrong technique in drug usage process [Not Recovered/Not Resolved]
  - Product quality issue [Unknown]
